FAERS Safety Report 5975037-1 (Version None)
Quarter: 2008Q4

REPORT INFORMATION
  Report Type: 
  Country: None (occurrence: None)
  Receive Date: 20081202
  Receipt Date: 20081120
  Transmission Date: 20090506
  Serious: Yes (Other)
  Sender: FDA-Public Use
  Company Number: JP-JNJFOC-20081105914

PATIENT
  Age: 38 Year
  Sex: Female
  Weight: 79 kg

DRUGS (1)
  1. RISPERDAL [Suspect]
     Indication: SCHIZOPHRENIA
     Route: 048

REACTIONS (6)
  - ABDOMINAL DISTENSION [None]
  - HYPERLIPIDAEMIA [None]
  - PULSE ABNORMAL [None]
  - TONGUE DISCOLOURATION [None]
  - WEIGHT DECREASED [None]
  - WEIGHT INCREASED [None]
